FAERS Safety Report 25800145 (Version 1)
Quarter: 2025Q3

REPORT INFORMATION
  Report Type: Report from Study
  Country: CA (occurrence: CA)
  Receive Date: 20250915
  Receipt Date: 20250915
  Transmission Date: 20251020
  Serious: Yes (Other)
  Sender: JOHNSON AND JOHNSON
  Company Number: CA-JNJFOC-20250828369

PATIENT
  Sex: Female

DRUGS (1)
  1. REMICADE [Suspect]
     Active Substance: INFLIXIMAB
     Indication: Rheumatoid arthritis
     Route: 041

REACTIONS (5)
  - Skin cancer [Unknown]
  - Arthralgia [Not Recovered/Not Resolved]
  - Ear infection [Unknown]
  - Post procedural infection [Unknown]
  - Joint stiffness [Not Recovered/Not Resolved]
